FAERS Safety Report 4352303-7 (Version None)
Quarter: 2004Q2

REPORT INFORMATION
  Report Type: 
  Country: None (occurrence: None)
  Receive Date: 20040428
  Receipt Date: 20040408
  Transmission Date: 20050107
  Serious: Yes (Life-Threatening)
  Sender: FDA-Public Use
  Company Number: EWC040438853

PATIENT
  Age: 73 Year
  Sex: Female

DRUGS (9)
  1. ZYPREXA [Suspect]
     Indication: PSYCHOTIC DISORDER
     Dosage: 2.5 MG/1 DAY
     Dates: start: 20030601, end: 20040226
  2. ATENOLOL [Concomitant]
  3. ENALAPRIL MALEATE [Concomitant]
  4. INDAPAMIDE [Concomitant]
  5. BROMAZEPAM [Concomitant]
  6. DORZOLAMIDE [Concomitant]
  7. TIMOLOL MALEATE [Concomitant]
  8. BRIMONIDINE [Concomitant]
  9. VOLTAREN [Concomitant]

REACTIONS (13)
  - APALLIC SYNDROME [None]
  - ASTHENIA [None]
  - BRAIN OEDEMA [None]
  - BUNDLE BRANCH BLOCK LEFT [None]
  - CARDIO-RESPIRATORY ARREST [None]
  - COMA [None]
  - CONFUSIONAL STATE [None]
  - HALLUCINATION [None]
  - HYPERCAPNIA [None]
  - HYPOXIA [None]
  - QUADRIPLEGIA [None]
  - RESPIRATORY FAILURE [None]
  - TREMOR [None]
